FAERS Safety Report 9840747 (Version 2)
Quarter: 2014Q1

REPORT INFORMATION
  Report Type: Spontaneous
  Country: US (occurrence: US)
  Receive Date: 20140124
  Receipt Date: 20140124
  Transmission Date: 20141002
  Serious: No
  Sender: FDA-Public Use
  Company Number: US-B.I. PHARMACEUTICALS,INC./RIDGEFIELD-2013-BI-23204BP

PATIENT
  Sex: Male
  Weight: 108.86 kg

DRUGS (1)
  1. PRADAXA [Suspect]

REACTIONS (6)
  - Rash [Unknown]
  - Contusion [Unknown]
  - Dyspepsia [Unknown]
  - Bone pain [Unknown]
  - Myalgia [Unknown]
  - Gastrointestinal haemorrhage [Unknown]
